FAERS Safety Report 8455449-7 (Version None)
Quarter: 2012Q2

REPORT INFORMATION
  Report Type: 
  Country: None (occurrence: None)
  Receive Date: 20120621
  Receipt Date: 20120621
  Transmission Date: 20120825
  Serious: Yes (Other)
  Sender: FDA-Public Use
  Company Number: US-JNJFOC-20120514668

PATIENT
  Sex: Male
  Weight: 82.56 kg

DRUGS (6)
  1. LEVAQUIN [Suspect]
     Indication: CYSTITIS
     Dosage: FOR 7 DAYS
     Route: 048
     Dates: start: 20120421, end: 20120426
  2. FLOMAX [Concomitant]
     Indication: NOCTURIA
     Route: 065
     Dates: start: 20120101
  3. FLOMAX [Concomitant]
     Indication: POLLAKIURIA
     Route: 065
     Dates: start: 20120101
  4. FINASTERIDE [Concomitant]
     Indication: POLLAKIURIA
     Route: 048
     Dates: start: 20120301
  5. FINASTERIDE [Concomitant]
     Indication: NOCTURIA
     Route: 048
     Dates: start: 20120301
  6. LISINOPRIL [Concomitant]
     Indication: HYPERTENSION
     Dosage: ABOUT 2008
     Route: 065

REACTIONS (2)
  - TENDONITIS [None]
  - HAEMATURIA [None]
